FAERS Safety Report 16277377 (Version 1)
Quarter: 2019Q2

REPORT INFORMATION
  Report Type: Spontaneous
  Country: US (occurrence: US)
  Receive Date: 20190506
  Receipt Date: 20190506
  Transmission Date: 20190711
  Serious: Yes (Hospitalization)
  Sender: FDA-Public Use
  Company Number: None

PATIENT
  Sex: Female

DRUGS (5)
  1. OXYCODONE [Concomitant]
     Active Substance: OXYCODONE
  2. MULTI-VIT [Concomitant]
     Active Substance: VITAMINS
  3. TYLENOL [Concomitant]
     Active Substance: ACETAMINOPHEN
  4. XALKORI [Suspect]
     Active Substance: CRIZOTINIB
     Indication: COLON CANCER
     Route: 048
  5. BIOTIN [Concomitant]
     Active Substance: BIOTIN

REACTIONS (1)
  - Hernia repair [None]
